FAERS Safety Report 6684557-6 (Version None)
Quarter: 2010Q2

REPORT INFORMATION
  Report Type: 
  Country: None (occurrence: None)
  Receive Date: 20100416
  Receipt Date: 20100412
  Transmission Date: 20101027
  Serious: Yes (Death)
  Sender: FDA-Public Use
  Company Number: FR-ROCHE-696723

PATIENT
  Sex: Male
  Weight: 64 kg

DRUGS (7)
  1. BEVACIZUMAB [Suspect]
     Route: 042
  2. CAPECITABINE [Suspect]
     Route: 065
  3. OXALIPLATIN [Suspect]
     Route: 042
  4. CALCIUM FOLINATE [Suspect]
     Route: 042
  5. TAHOR [Concomitant]
     Dates: start: 20080101
  6. LODOZ [Concomitant]
     Dates: start: 20080101
  7. AMLOR [Concomitant]
     Dates: start: 20080101

REACTIONS (4)
  - ANAEMIA [None]
  - GENERALISED OEDEMA [None]
  - HYPOPROTEINAEMIA [None]
  - HYPOTHERMIA [None]
